FAERS Safety Report 4919301-3 (Version None)
Quarter: 2006Q1

REPORT INFORMATION
  Report Type: 
  Country: None (occurrence: None)
  Receive Date: 20060113
  Receipt Date: 20051207
  Transmission Date: 20060701
  Serious: No
  Sender: FDA-Public Use
  Company Number: 2005SP004311

PATIENT
  Age: 50 Year
  Sex: Female

DRUGS (5)
  1. LUNESTA [Suspect]
     Dosage: ORAL
     Route: 048
     Dates: start: 20051201, end: 20051202
  2. LUNESTA [Suspect]
     Dosage: ORAL
     Route: 048
     Dates: start: 20051206
  3. ATENOLOL [Concomitant]
  4. PROTONIX [Concomitant]
  5. ASPIRIN [Concomitant]

REACTIONS (2)
  - NERVOUSNESS [None]
  - PARADOXICAL DRUG REACTION [None]
